FAERS Safety Report 6756707-4 (Version None)
Quarter: 2010Q2

REPORT INFORMATION
  Report Type: 
  Country: None (occurrence: None)
  Receive Date: 20100604
  Receipt Date: 20100521
  Transmission Date: 20101027
  Serious: Yes (Other)
  Sender: FDA-Public Use
  Company Number: US-ELI_LILLY_AND_COMPANY-US201004007717

PATIENT
  Sex: Female

DRUGS (7)
  1. FORTEO [Suspect]
     Indication: OSTEOPOROSIS
     Dosage: 20 UG, DAILY (1/D)
     Dates: start: 20090701
  2. LEVOTHYROXINE SODIUM [Concomitant]
     Dosage: 0.125 MG, DAILY (1/D)
  3. EFFEXOR [Concomitant]
     Indication: DEPRESSION
     Dosage: 150 MG, DAILY (1/D)
  4. LEXAPRO [Concomitant]
     Indication: DEPRESSION
     Dosage: 40 MG, DAILY (1/D)
  5. RITALIN [Concomitant]
     Indication: PANIC ATTACK
     Dosage: 10 MG, 2/D
  6. VITAMIN D [Concomitant]
     Dosage: 2000 MG, DAILY (1/D)
  7. CALCIUM CARBONATE [Concomitant]
     Dosage: 1200 MG, DAILY (1/D)

REACTIONS (1)
  - DEEP VEIN THROMBOSIS [None]
